FAERS Safety Report 16191049 (Version 4)
Quarter: 2019Q3

REPORT INFORMATION
  Report Type: Spontaneous
  Country: FR (occurrence: FR)
  Receive Date: 20190412
  Receipt Date: 20190812
  Transmission Date: 20191004
  Serious: Yes (Disabling, Other)
  Sender: FDA-Public Use
  Company Number: FR-PFIZER INC-2019159821

PATIENT
  Age: 30 Year
  Sex: Male
  Weight: 90 kg

DRUGS (1)
  1. IMETH [Suspect]
     Active Substance: METHOTREXATE SODIUM
     Indication: PARAPSORIASIS
     Dosage: 15 MG, WEEKLY (AVERAGE WEEKLY DOSE OF 15 MG) (CORRESPONDING TO 0.17 MG/KG/WEEK)
     Route: 048
     Dates: start: 201603, end: 20181015

REACTIONS (5)
  - Neurotoxicity [Recovered/Resolved]
  - Vertigo [Recovered/Resolved]
  - Hyporeflexia [Recovered/Resolved]
  - Off label use [Unknown]
  - Product use in unapproved indication [Unknown]

NARRATIVE: CASE EVENT DATE: 201603
